FAERS Safety Report 11058458 (Version 1)
Quarter: 2015Q2

REPORT INFORMATION
  Report Type: Spontaneous
  Country: US (occurrence: None)
  Receive Date: 20150422
  Receipt Date: 20150422
  Transmission Date: 20150821
  Serious: Yes (Other)
  Sender: FDA-Public Use
  Company Number: None

PATIENT
  Age: 83 Year
  Sex: Female

DRUGS (7)
  1. LETROZOLE. [Concomitant]
     Active Substance: LETROZOLE
  2. OMEPRAZOLE. [Concomitant]
     Active Substance: OMEPRAZOLE
  3. CALCIUM WITH VIT. D [Concomitant]
  4. PROCHLORPERAZINE. [Concomitant]
     Active Substance: PROCHLORPERAZINE
  5. LORAZEPAM. [Concomitant]
     Active Substance: LORAZEPAM
  6. IBRANCE [Suspect]
     Active Substance: PALBOCICLIB
     Indication: BREAST CANCER
     Dosage: QD X21D
     Route: 048
     Dates: start: 20150331, end: 20150421
  7. ONDANSETRON [Concomitant]
     Active Substance: ONDANSETRON

REACTIONS (3)
  - Malaise [None]
  - Nausea [None]
  - White blood cell count decreased [None]

NARRATIVE: CASE EVENT DATE: 201504
